FAERS Safety Report 6234824-5 (Version None)
Quarter: 2009Q2

REPORT INFORMATION
  Report Type: 
  Country: None (occurrence: None)
  Receive Date: 20090615
  Receipt Date: 20090421
  Transmission Date: 20091009
  Serious: No
  Sender: FDA-Public Use
  Company Number: DSA_33553_2009

PATIENT
  Sex: Male

DRUGS (3)
  1. XENAZINE [Suspect]
     Indication: TOURETTE'S DISORDER
     Dosage: 25 MG QD, 25 MG TID
     Dates: end: 20090416
  2. XENAZINE [Suspect]
     Indication: TOURETTE'S DISORDER
     Dosage: 25 MG QD, 25 MG TID
     Dates: start: 20090326
  3. HALDOL [Concomitant]

REACTIONS (5)
  - AFFECT LABILITY [None]
  - ANXIETY [None]
  - CONDITION AGGRAVATED [None]
  - DRUG INEFFECTIVE FOR UNAPPROVED INDICATION [None]
  - TOURETTE'S DISORDER [None]
